FAERS Safety Report 20723631 (Version 5)
Quarter: 2023Q2

REPORT INFORMATION
  Report Type: Report from Study
  Country: US (occurrence: US)
  Receive Date: 20220419
  Receipt Date: 20230430
  Transmission Date: 20230722
  Serious: No
  Sender: FDA-Public Use
  Company Number: US-NOVARTISTESTPH-NVSC2022US090144

PATIENT
  Age: 74 Year
  Sex: Male

DRUGS (5)
  1. LEQVIO [Suspect]
     Active Substance: INCLISIRAN SODIUM
     Indication: Product used for unknown indication
     Dosage: UNK, EVERY 6 MONTHS
     Route: 050
     Dates: start: 20220211
  2. LEQVIO [Suspect]
     Active Substance: INCLISIRAN SODIUM
     Dosage: UNK
     Route: 065
     Dates: start: 202203
  3. LEQVIO [Suspect]
     Active Substance: INCLISIRAN SODIUM
     Dosage: UNK
     Route: 058
     Dates: start: 202210
  4. LEQVIO [Suspect]
     Active Substance: INCLISIRAN SODIUM
     Dosage: UNK
     Route: 058
     Dates: start: 20230425
  5. CRESTOR [Concomitant]
     Active Substance: ROSUVASTATIN CALCIUM
     Indication: Product used for unknown indication
     Dosage: UNK (CUT BACK ON CRESTOR FROM 20MG TO 10MG.)
     Route: 065

REACTIONS (13)
  - Dizziness [Unknown]
  - Hypoaesthesia [Unknown]
  - Abdominal discomfort [Unknown]
  - Nausea [Unknown]
  - Faeces soft [Unknown]
  - Low density lipoprotein decreased [Unknown]
  - Amnesia [Unknown]
  - Pain [Unknown]
  - Musculoskeletal stiffness [Unknown]
  - Constipation [Unknown]
  - Bowel movement irregularity [Unknown]
  - Injection site pain [Unknown]
  - Product dose omission issue [Unknown]

NARRATIVE: CASE EVENT DATE: 20220211
